FAERS Safety Report 5803093-X (Version None)
Quarter: 2008Q3

REPORT INFORMATION
  Report Type: 
  Country: None (occurrence: None)
  Receive Date: 20080701
  Receipt Date: 20080402
  Transmission Date: 20090109
  Serious: Yes (Hospitalization)
  Sender: FDA-Public Use
  Company Number: US200804000796

PATIENT
  Age: 26 Year
  Sex: Male

DRUGS (2)
  1. HUMALOG [Suspect]
     Indication: DIABETES MELLITUS
  2. LANTUS [Concomitant]

REACTIONS (7)
  - AMNESIA [None]
  - BLOOD GLUCOSE INCREASED [None]
  - CONVULSION [None]
  - HEADACHE [None]
  - HYPOGLYCAEMIA [None]
  - SCAR [None]
  - TONGUE BITING [None]
